FAERS Safety Report 8468876-9 (Version None)
Quarter: 2012Q2

REPORT INFORMATION
  Report Type: 
  Country: None (occurrence: None)
  Receive Date: 20120626
  Receipt Date: 20110107
  Transmission Date: 20120825
  Serious: Yes (Other)
  Sender: FDA-Public Use
  Company Number: US-ROCHE-752379

PATIENT
  Age: 83 Year
  Sex: Female
  Weight: 44.5 kg

DRUGS (5)
  1. BONIVA [Suspect]
     Indication: OSTEOPENIA
     Dosage: DATES OF USE: 3 YEARS
     Route: 048
  2. PREDNISONE [Concomitant]
  3. VITAMIN B COMPLEX CAP [Concomitant]
  4. BOTANICAL NOS [Concomitant]
     Dosage: CITRAL CAL WITH CALCIUM
  5. NEXIUM [Concomitant]

REACTIONS (2)
  - TEMPORAL ARTERITIS [None]
  - TEMPOROMANDIBULAR JOINT SYNDROME [None]
